FAERS Safety Report 6808862-5 (Version None)
Quarter: 2010Q2

REPORT INFORMATION
  Report Type: 
  Country: None (occurrence: None)
  Receive Date: 20100630
  Receipt Date: 20091102
  Transmission Date: 20101027
  Serious: No
  Sender: FDA-Public Use
  Company Number: US-PFIZER INC-2009272159

PATIENT
  Sex: Male
  Weight: 99.8 kg

DRUGS (2)
  1. VIAGRA [Suspect]
     Indication: ERECTILE DYSFUNCTION
     Dosage: 100 MG, UNK
     Route: 048
     Dates: start: 20050101
  2. LOTREL [Concomitant]
     Indication: HYPERTENSION

REACTIONS (1)
  - ERECTILE DYSFUNCTION [None]
